FAERS Safety Report 16182574 (Version 1)
Quarter: 2019Q2

REPORT INFORMATION
  Report Type: Spontaneous
  Country: IT (occurrence: FR)
  Receive Date: 20190411
  Receipt Date: 20190411
  Transmission Date: 20190711
  Serious: Yes (Hospitalization, Other)
  Sender: FDA-Public Use
  Company Number: IT-ROCHE-2296770

PATIENT
  Age: 81 Year
  Sex: Female

DRUGS (4)
  1. EXEMESTANE. [Concomitant]
     Active Substance: EXEMESTANE
  2. CAPECITABINE. [Suspect]
     Active Substance: CAPECITABINE
     Indication: INVASIVE DUCTAL BREAST CARCINOMA
     Route: 065
  3. CAPECITABINE. [Suspect]
     Active Substance: CAPECITABINE
     Indication: BREAST CANCER METASTATIC
     Route: 065
  4. PACLITAXEL. [Concomitant]
     Active Substance: PACLITAXEL

REACTIONS (10)
  - Blood phosphorus decreased [Recovered/Resolved]
  - Asthenia [Recovered/Resolved]
  - Transaminases increased [Recovered/Resolved]
  - Blood magnesium decreased [Recovered/Resolved]
  - Neutropenia [Recovered/Resolved]
  - Prothrombin time prolonged [Recovered/Resolved]
  - Diarrhoea [Unknown]
  - Hypoalbuminaemia [Recovered/Resolved]
  - Thrombocytopenia [Unknown]
  - Blood potassium decreased [Recovered/Resolved]
